FAERS Safety Report 7496159-2 (Version None)
Quarter: 2011Q2

REPORT INFORMATION
  Report Type: 
  Country: None (occurrence: None)
  Receive Date: 20110523
  Receipt Date: 20110510
  Transmission Date: 20111010
  Serious: Yes (Hospitalization, Other)
  Sender: FDA-Public Use
  Company Number: PHHY2011BR27195

PATIENT
  Sex: Female

DRUGS (3)
  1. EXFORGE [Suspect]
     Dosage: 160 MG VALSARTAN AND 5 MG OF AMLODIPINE
  2. EXFORGE [Suspect]
     Dosage: 320 MG VALSARTAN AND 10 MG AMLODIPINE
  3. EXFORGE [Suspect]
     Dosage: 160 MG VALSARTAN AND 5 MG AMLODIPINE

REACTIONS (3)
  - DIZZINESS [None]
  - BLOOD PRESSURE INCREASED [None]
  - OEDEMA PERIPHERAL [None]
